FAERS Safety Report 7837934 (Version 4)
Quarter: 2017Q1

REPORT INFORMATION
  Report Type: Spontaneous
  Country: US (occurrence: US)
  Receive Date: 20110302
  Receipt Date: 20170125
  Transmission Date: 20170429
  Serious: Yes (Other)
  Sender: FDA-Public Use
  Company Number: US-ASTRAZENECA-2010SE18092

PATIENT
  Age: 57 Year
  Sex: Male
  Weight: 110.7 kg

DRUGS (33)
  1. VITAMIN C [Concomitant]
     Active Substance: ASCORBIC ACID
     Indication: ASTHENIA
     Route: 048
  2. LEVOCETIRIZINE [Concomitant]
     Active Substance: LEVOCETIRIZINE
     Indication: BRONCHITIS
     Route: 048
  3. LISINOPRIL. [Suspect]
     Active Substance: LISINOPRIL
     Indication: HYPERTENSION
     Route: 048
  4. FUROSEMIDE. [Concomitant]
     Active Substance: FUROSEMIDE
     Indication: FLUID RETENTION
     Route: 048
  5. DOCUSATE SODIUM. [Concomitant]
     Active Substance: DOCUSATE SODIUM
     Indication: FAECES HARD
     Route: 048
  6. CRESTOR [Suspect]
     Active Substance: ROSUVASTATIN CALCIUM
     Indication: BLOOD CHOLESTEROL INCREASED
     Route: 048
  7. GLIPIZIDE. [Concomitant]
     Active Substance: GLIPIZIDE
     Indication: DIABETES MELLITUS
     Route: 048
  8. PNEUMONIA SHOTS [Concomitant]
     Indication: IMMUNE SYSTEM DISORDER
     Dosage: YEAR
  9. TOPROL XL [Suspect]
     Active Substance: METOPROLOL SUCCINATE
     Indication: HYPERTENSION
     Dosage: 100.0MG UNKNOWN
     Route: 048
  10. TRAMADOL HCL [Concomitant]
     Active Substance: TRAMADOL HYDROCHLORIDE
     Indication: INTERVERTEBRAL DISC PROTRUSION
     Route: 048
  11. LEVOCETIRIZINE [Concomitant]
     Active Substance: LEVOCETIRIZINE
     Indication: SINUS DISORDER
     Route: 048
  12. LEVOCETIRIZINE [Concomitant]
     Active Substance: LEVOCETIRIZINE
     Indication: NASAL CONGESTION
     Route: 048
  13. CRESTOR [Suspect]
     Active Substance: ROSUVASTATIN CALCIUM
     Indication: BLOOD CHOLESTEROL INCREASED
     Route: 048
  14. OMEPRAZOLE. [Suspect]
     Active Substance: OMEPRAZOLE
     Indication: GASTROOESOPHAGEAL REFLUX DISEASE
     Route: 048
  15. GABAPENTIN. [Concomitant]
     Active Substance: GABAPENTIN
     Indication: DIABETIC NEUROPATHY
     Route: 048
  16. AMLODIPINE BESYLATE. [Concomitant]
     Active Substance: AMLODIPINE BESYLATE
     Indication: HYPERTENSION
     Route: 048
  17. MONTELUKAST SODIUM. [Concomitant]
     Active Substance: MONTELUKAST SODIUM
     Indication: BRONCHITIS
     Route: 048
  18. FLU SHOTS [Concomitant]
     Indication: IMMUNE SYSTEM DISORDER
     Dosage: YEAR
  19. BYDUREON [Suspect]
     Active Substance: EXENATIDE
     Route: 058
     Dates: start: 201611
  20. JANUMET [Concomitant]
     Active Substance: METFORMIN HYDROCHLORIDE\SITAGLIPTIN PHOSPHATE
     Indication: BLOOD GLUCOSE INCREASED
     Dosage: 50 MG JANUVIA/ 1000 MG METFORMIN, TWO TIMES A DAY
     Route: 048
  21. TRAMADOL HCL [Concomitant]
     Active Substance: TRAMADOL HYDROCHLORIDE
     Indication: PAIN
     Route: 048
  22. TRAMADOL HCL [Concomitant]
     Active Substance: TRAMADOL HYDROCHLORIDE
     Indication: ARTHRALGIA
     Route: 048
  23. LYRICA [Concomitant]
     Active Substance: PREGABALIN
     Indication: PAIN
     Route: 048
  24. SEA OMEGA FISH OIL [Concomitant]
     Indication: BLOOD PRESSURE ABNORMAL
     Dosage: 1200MG/360 MG, TWO TIMES A DAY
     Route: 048
  25. TOPROL XL [Suspect]
     Active Substance: METOPROLOL SUCCINATE
     Indication: HYPERTENSION
     Dosage: 200.0MG UNKNOWN
     Route: 048
  26. FLUCONAZONE [Concomitant]
     Indication: ONYCHOMYCOSIS
  27. NEURONTIN [Concomitant]
     Active Substance: GABAPENTIN
     Route: 048
     Dates: start: 20130402
  28. POTASSIUM [Concomitant]
     Active Substance: POTASSIUM
     Indication: MINERAL SUPPLEMENTATION
     Route: 048
  29. FUROSEMIDE. [Concomitant]
     Active Substance: FUROSEMIDE
     Indication: FLUID RETENTION
     Route: 048
  30. QUINAPRIL. [Concomitant]
     Active Substance: QUINAPRIL
     Indication: HYPERTENSION
     Route: 048
  31. ASPIRIN. [Concomitant]
     Active Substance: ASPIRIN
     Indication: ANTICOAGULANT THERAPY
     Route: 048
  32. TRAMADOL HCL [Concomitant]
     Active Substance: TRAMADOL HYDROCHLORIDE
     Indication: NEUROPATHY PERIPHERAL
     Route: 048
  33. LYRICA [Concomitant]
     Active Substance: PREGABALIN
     Indication: NEUROPATHY PERIPHERAL
     Route: 048

REACTIONS (15)
  - Injection site nodule [Unknown]
  - Amnesia [Unknown]
  - Bronchitis [Unknown]
  - Oedema peripheral [Unknown]
  - Injection site pain [Unknown]
  - Injection site haemorrhage [Unknown]
  - Off label use [Unknown]
  - Diabetic neuropathy [Unknown]
  - Nail disorder [Unknown]
  - Abdominal pain [Unknown]
  - Injection site scab [Unknown]
  - Cerebrovascular accident [Unknown]
  - Contusion [Unknown]
  - Hypersensitivity [Unknown]
  - Blood pressure increased [Unknown]

NARRATIVE: CASE EVENT DATE: 2010
